FAERS Safety Report 6478675-5 (Version None)
Quarter: 2009Q4

REPORT INFORMATION
  Report Type: 
  Country: None (occurrence: None)
  Receive Date: 20091207
  Receipt Date: 20091126
  Transmission Date: 20100525
  Serious: Yes (Hospitalization)
  Sender: FDA-Public Use
  Company Number: FR-PFIZER INC-2009303042

PATIENT
  Age: 49 Year
  Sex: Female

DRUGS (11)
  1. XANAX [Suspect]
     Dosage: 0.50 MG, 1X/DAY
     Route: 048
  2. PRAZEPAM [Suspect]
     Dosage: 10 MG, 3X/DAY
     Route: 048
  3. MEPRONIZINE [Suspect]
     Dosage: 3 DF, 1X/DAY
     Route: 048
  4. SOLUPRED [Concomitant]
     Dosage: 15 GBQ, 1X/DAY
     Route: 048
  5. LEVOTHYROXINE SODIUM [Concomitant]
     Dosage: 175 UG, 1X/DAY
     Route: 048
  6. AMIODARONE [Concomitant]
     Dosage: 1 DF, 1X/DAY
     Route: 048
  7. PROGRAF [Concomitant]
     Dosage: 1 MG, 2X/DAY
     Route: 048
  8. CALPEROS [Concomitant]
     Dosage: 1 DF, 1X/DAY
     Route: 048
  9. RENAGEL [Concomitant]
     Dosage: 2 DF, 2X/DAY
     Route: 048
  10. DEDROGYL [Concomitant]
     Dosage: 20 DF, 1X/DAY
     Route: 048
  11. ESCITALOPRAM [Concomitant]
     Dosage: 1 DF, 1X/DAY
     Route: 048
     Dates: start: 20090303, end: 20090303

REACTIONS (1)
  - ASTHENIA [None]
